FAERS Safety Report 18789614 (Version 1)
Quarter: 2021Q1

REPORT INFORMATION
  Report Type: Report from Study
  Country: US (occurrence: US)
  Receive Date: 20210126
  Receipt Date: 20210126
  Transmission Date: 20210419
  Serious: Yes (Death)
  Sender: FDA-Public Use
  Company Number: US-ASTRAZENECA-2021A010583

PATIENT
  Age: 79 Year
  Sex: Male

DRUGS (15)
  1. PREDNISOLONE. [Concomitant]
     Active Substance: PREDNISOLONE
  2. TIMOLOL. [Concomitant]
     Active Substance: TIMOLOL
  3. CALQUENCE [Suspect]
     Active Substance: ACALABRUTINIB
     Indication: NON-HODGKIN^S LYMPHOMA
     Route: 048
  4. CLOBETASOL [Concomitant]
     Active Substance: CLOBETASOL
  5. ZOFRAN [Concomitant]
     Active Substance: ONDANSETRON HYDROCHLORIDE
  6. LIDOCAINE?PRILOCAINE [Concomitant]
     Active Substance: LIDOCAINE\PRILOCAINE
  7. SILVADENE [Concomitant]
     Active Substance: SILVER SULFADIAZINE
  8. ALBUTEROL. [Concomitant]
     Active Substance: ALBUTEROL
  9. MELATONIN [Concomitant]
     Active Substance: MELATONIN
  10. LIDOCAINE. [Concomitant]
     Active Substance: LIDOCAINE
  11. ASPIRIN. [Concomitant]
     Active Substance: ASPIRIN
  12. PREDNISONE. [Concomitant]
     Active Substance: PREDNISONE
  13. TRAMADOL. [Concomitant]
     Active Substance: TRAMADOL
  14. SENNA [Concomitant]
     Active Substance: SENNA LEAF\SENNOSIDES\SENNOSIDES A AND B
  15. CETIRIZINE [Concomitant]
     Active Substance: CETIRIZINE HYDROCHLORIDE

REACTIONS (1)
  - Death [Fatal]

NARRATIVE: CASE EVENT DATE: 20210105
